FAERS Safety Report 19356351 (Version 1)
Quarter: 2021Q2

REPORT INFORMATION
  Report Type: Spontaneous
  Country: IN (occurrence: IN)
  Receive Date: 20210601
  Receipt Date: 20210601
  Transmission Date: 20210717
  Serious: Yes (Death, Other)
  Sender: FDA-Public Use
  Company Number: IN-TILLOMEDPR-2021-EPL-001708

PATIENT

DRUGS (4)
  1. VINGRAF [Suspect]
     Active Substance: TACROLIMUS
     Indication: RENAL TRANSPLANT
     Dosage: 1 MILLIGRAM, IN MORNING
     Route: 048
     Dates: start: 20180729, end: 20210219
  2. VINGRAF [Suspect]
     Active Substance: TACROLIMUS
     Dosage: 0.5 MILLIGRAM, IN EVENING
     Route: 048
     Dates: start: 20180729, end: 20210219
  3. MOFILET [Suspect]
     Active Substance: MYCOPHENOLATE MOFETIL
     Indication: RENAL TRANSPLANT
     Dosage: 500 MILLIGRAM, BID
     Route: 048
     Dates: start: 20180729, end: 20210219
  4. OMNACORTIL [Concomitant]
     Active Substance: PREDNISOLONE
     Dosage: 5 MILLIGRAM, QD
     Route: 048
     Dates: start: 2018, end: 20210219

REACTIONS (4)
  - Death [Fatal]
  - Seizure [Unknown]
  - Coma [Unknown]
  - Haemorrhage [Unknown]

NARRATIVE: CASE EVENT DATE: 20210101
